FAERS Safety Report 20021685 (Version 3)
Quarter: 2022Q2

REPORT INFORMATION
  Report Type: Spontaneous
  Country: CA (occurrence: CA)
  Receive Date: 20211101
  Receipt Date: 20220614
  Transmission Date: 20220721
  Serious: Yes (Hospitalization, Other)
  Sender: FDA-Public Use
  Company Number: CA-TEVA-2021-CA-1972085

PATIENT
  Age: 36 Year
  Sex: Female

DRUGS (26)
  1. ASPIRIN [Suspect]
     Active Substance: ASPIRIN
     Indication: Product used for unknown indication
     Route: 065
  2. AZATHIOPRINE [Suspect]
     Active Substance: AZATHIOPRINE
     Indication: Product used for unknown indication
     Route: 065
  3. ESCITALOPRAM [Suspect]
     Active Substance: ESCITALOPRAM OXALATE
     Indication: Product used for unknown indication
     Route: 065
  4. LANSOPRAZOLE [Suspect]
     Active Substance: LANSOPRAZOLE
     Indication: Product used for unknown indication
     Route: 065
  5. MORPHINE SULFATE [Suspect]
     Active Substance: MORPHINE SULFATE
     Indication: Product used for unknown indication
     Route: 065
  6. FENTANYL [Suspect]
     Active Substance: FENTANYL
     Indication: Product used for unknown indication
     Route: 037
  7. ALBUTEROL SULFATE [Suspect]
     Active Substance: ALBUTEROL SULFATE
     Indication: Product used for unknown indication
     Route: 065
  8. BUPIVACAINE HYDROCHLORIDE [Suspect]
     Active Substance: BUPIVACAINE HYDROCHLORIDE
     Indication: Epidural anaesthesia
     Route: 065
  9. BUPIVACAINE HYDROCHLORIDE [Suspect]
     Active Substance: BUPIVACAINE HYDROCHLORIDE
     Indication: Anaesthesia
     Route: 065
  10. BUPIVACAINE HYDROCHLORIDE [Suspect]
     Active Substance: BUPIVACAINE HYDROCHLORIDE
     Route: 037
  11. CALCIUM CHLORIDE\POTASSIUM CHLORIDE\SODIUM CHLORIDE\SODIUM LACTATE [Suspect]
     Active Substance: CALCIUM CHLORIDE\POTASSIUM CHLORIDE\SODIUM CHLORIDE\SODIUM LACTATE
     Indication: Product used for unknown indication
     Route: 065
  12. CARBETOCIN [Suspect]
     Active Substance: CARBETOCIN
     Indication: Product used for unknown indication
     Route: 065
  13. EPINEPHRINE [Suspect]
     Active Substance: EPINEPHRINE
     Indication: Product used for unknown indication
     Route: 008
  14. FENTANYL CITRATE [Suspect]
     Active Substance: FENTANYL CITRATE
     Indication: Epidural anaesthesia
     Route: 037
  15. FENTANYL CITRATE [Suspect]
     Active Substance: FENTANYL CITRATE
     Indication: Anaesthesia
     Route: 037
  16. LIDOCAINE [Suspect]
     Active Substance: LIDOCAINE
     Indication: Product used for unknown indication
     Route: 008
  17. METHYLDOPA [Suspect]
     Active Substance: METHYLDOPA
     Indication: Product used for unknown indication
     Route: 065
  18. PHENYLEPHRINE HYDROCHLORIDE [Suspect]
     Active Substance: PHENYLEPHRINE HYDROCHLORIDE
     Indication: Product used for unknown indication
     Route: 065
  19. PHENYLEPHRINE HYDROCHLORIDE [Suspect]
     Active Substance: PHENYLEPHRINE HYDROCHLORIDE
     Route: 042
  20. TACROLIMUS [Suspect]
     Active Substance: TACROLIMUS
     Indication: Product used for unknown indication
     Route: 065
  21. TINZAPARIN [Suspect]
     Active Substance: TINZAPARIN
     Indication: Product used for unknown indication
     Route: 065
  22. LANSOPRAZOLE [Suspect]
     Active Substance: LANSOPRAZOLE
     Indication: Product used for unknown indication
     Route: 065
  23. FENTANYL [Suspect]
     Active Substance: FENTANYL
     Indication: Epidural anaesthesia
     Route: 039
  24. EPINEPHRINE [Concomitant]
     Active Substance: EPINEPHRINE
     Route: 008
  25. LIDOCAINE/NOREPINEPHRINE [Concomitant]
     Route: 008
  26. LIDOCAINE/NOREPINEPHRINE [Concomitant]
     Route: 065

REACTIONS (7)
  - Dyspnoea [Unknown]
  - Anxiety [Unknown]
  - Maternal exposure during pregnancy [Unknown]
  - Normal newborn [Unknown]
  - Live birth [Unknown]
  - Premature delivery [Unknown]
  - Exposure during pregnancy [Unknown]
